FAERS Safety Report 6282721-1 (Version None)
Quarter: 2009Q3

REPORT INFORMATION
  Report Type: 
  Country: None (occurrence: None)
  Receive Date: 20090724
  Receipt Date: 20090713
  Transmission Date: 20100115
  Serious: No
  Sender: FDA-Public Use
  Company Number: US-ELI_LILLY_AND_COMPANY-US200601001083

PATIENT
  Sex: Female
  Weight: 113.38 kg

DRUGS (17)
  1. ZYPREXA [Suspect]
     Indication: SCHIZOPHRENIA
     Dosage: 5 MG, UNK
     Dates: start: 19970101, end: 20020101
  2. ZYPREXA [Suspect]
     Dosage: 10 MG/KG, UNK
     Dates: start: 19970101, end: 20021203
  3. GEODON [Concomitant]
     Dosage: UNK, UNK
     Dates: start: 19990101, end: 20040218
  4. CLOZARIL [Concomitant]
     Dates: start: 20020101, end: 20030101
  5. PROLIXIN [Concomitant]
     Dates: start: 20020101, end: 20030101
  6. DEPAKOTE [Concomitant]
     Dosage: 500 MG, UNK
  7. TRAZODONE [Concomitant]
     Dosage: 50 MG, UNK
  8. VALPROIC ACID [Concomitant]
     Dosage: 250 MG, UNK
  9. RESTORIL [Concomitant]
     Dosage: 15 MG, AS NEEDED
     Dates: end: 20040218
  10. ZANTAC [Concomitant]
     Indication: GASTROOESOPHAGEAL REFLUX DISEASE
     Dosage: 150 MG, 2/D
  11. ZANTAC [Concomitant]
     Dosage: 300 MG, UNK
  12. UNIVASC [Concomitant]
     Dosage: 7.5 MG, DAILY (1/D)
  13. UNIVASC [Concomitant]
     Dosage: 15 MG, DAILY (1/D)
     Dates: start: 20020409
  14. CALCIUM [Concomitant]
     Dosage: UNK, DAILY (1/D)
  15. LISINOPRIL [Concomitant]
     Dosage: 20 MG, DAILY (1/D)
  16. XANAX [Concomitant]
     Dosage: 0.5 MG, OTHER
  17. RISPERIDONE [Concomitant]

REACTIONS (15)
  - ASTHENOPIA [None]
  - BLOOD TRIGLYCERIDES INCREASED [None]
  - BRONCHITIS [None]
  - CHEST PAIN [None]
  - HAEMOPTYSIS [None]
  - PARAESTHESIA [None]
  - PELVIC PAIN [None]
  - PHARYNGITIS [None]
  - POSTMENOPAUSAL HAEMORRHAGE [None]
  - PROCTITIS [None]
  - TOTAL CHOLESTEROL/HDL RATIO DECREASED [None]
  - TYPE 2 DIABETES MELLITUS [None]
  - URINARY TRACT INFECTION [None]
  - VAGINAL INFECTION [None]
  - WEIGHT INCREASED [None]
